FAERS Safety Report 19620293 (Version 1)
Quarter: 2021Q3

REPORT INFORMATION
  Report Type: Spontaneous
  Country: US (occurrence: US)
  Receive Date: 20210727
  Receipt Date: 20210727
  Transmission Date: 20211014
  Serious: Yes (Hospitalization)
  Sender: FDA-Public Use
  Company Number: None

PATIENT
  Age: 34 Year
  Sex: Female
  Weight: 108.86 kg

DRUGS (1)
  1. MIRENA [Suspect]
     Active Substance: LEVONORGESTREL
     Dates: start: 20150109, end: 20210329

REACTIONS (11)
  - Mood swings [None]
  - Depression [None]
  - Alopecia [None]
  - Embedded device [None]
  - Complication associated with device [None]
  - Pelvic pain [None]
  - Loss of libido [None]
  - Hirsutism [None]
  - Weight increased [None]
  - Acne [None]
  - Fatigue [None]

NARRATIVE: CASE EVENT DATE: 20210329
